FAERS Safety Report 18379867 (Version 2)
Quarter: 2020Q4

REPORT INFORMATION
  Report Type: Spontaneous
  Country: US (occurrence: US)
  Receive Date: 20201014
  Receipt Date: 20201028
  Transmission Date: 20210114
  Serious: Yes (Other)
  Sender: FDA-Public Use
  Company Number: US-SA-2020SA283513

PATIENT

DRUGS (1)
  1. ZANTAC [Suspect]
     Active Substance: RANITIDINE HYDROCHLORIDE
     Dosage: UNK
     Dates: start: 201201, end: 201910

REACTIONS (5)
  - Fluid retention [Unknown]
  - Oesophageal carcinoma [Unknown]
  - Throat cancer [Unknown]
  - Nasal neoplasm [Unknown]
  - Life expectancy shortened [Unknown]

NARRATIVE: CASE EVENT DATE: 20190701
